FAERS Safety Report 18468399 (Version 6)
Quarter: 2021Q4

REPORT INFORMATION
  Report Type: Report from Study
  Country: US (occurrence: US)
  Receive Date: 20201105
  Receipt Date: 20211023
  Transmission Date: 20220303
  Serious: Yes (Hospitalization, Other)
  Sender: FDA-Public Use
  Company Number: NVSC2020US294138

PATIENT
  Age: 44 Year
  Sex: Male

DRUGS (13)
  1. ENTRESTO [Suspect]
     Active Substance: SACUBITRIL\VALSARTAN
     Indication: Cardiac failure congestive
     Dosage: 1 DF (24/26 MG), BID
     Route: 048
     Dates: start: 20201021
  2. LISINOPRIL [Suspect]
     Active Substance: LISINOPRIL
     Indication: Essential hypertension
     Dosage: 1 DF, QD
     Route: 048
  3. FUROSEMIDE [Suspect]
     Active Substance: FUROSEMIDE
     Indication: Oedema
     Dosage: 1 DF, QD
     Route: 048
  4. FUROSEMIDE [Suspect]
     Active Substance: FUROSEMIDE
     Indication: Cardiac valve disease
     Dosage: 1 DF, BID
     Route: 048
  5. CARVEDILOL [Suspect]
     Active Substance: CARVEDILOL
     Indication: Product used for unknown indication
     Dosage: UNK
     Route: 065
  6. COREG [Concomitant]
     Active Substance: CARVEDILOL
     Indication: Cardiac valve disease
     Dosage: 1 DF, BID (WITH FOOD)
     Route: 048
  7. KLOR-CON [Concomitant]
     Active Substance: POTASSIUM CHLORIDE
     Indication: Product used for unknown indication
     Dosage: 1 DF, QD (PRN)
     Route: 048
  8. WARFARIN SODIUM [Concomitant]
     Active Substance: WARFARIN SODIUM
     Indication: Product used for unknown indication
     Dosage: 1 DF, QD
     Route: 048
  9. VITAMIN D [Concomitant]
     Active Substance: VITAMIN D NOS
     Indication: Product used for unknown indication
     Dosage: UNK
     Route: 065
     Dates: start: 20201019
  10. LASIX [Concomitant]
     Active Substance: FUROSEMIDE
     Indication: Product used for unknown indication
     Dosage: UNK, FOR 3-4 MONTHS
     Route: 065
  11. LASIX [Concomitant]
     Active Substance: FUROSEMIDE
     Dosage: 1 DF, PRN
     Route: 065
  12. COUMADIN [Concomitant]
     Active Substance: WARFARIN SODIUM
     Indication: Product used for unknown indication
     Dosage: 5 MG, PRN
     Route: 048
  13. CETIRIZINE HYDROCHLORIDE [Concomitant]
     Active Substance: CETIRIZINE HYDROCHLORIDE
     Indication: Product used for unknown indication
     Dosage: 1 DF, QD
     Route: 048

REACTIONS (21)
  - Ventricular tachycardia [Unknown]
  - Transient ischaemic attack [Unknown]
  - Diastolic dysfunction [Unknown]
  - Cardiac failure chronic [Unknown]
  - Congestive cardiomyopathy [Unknown]
  - Dyspnoea exertional [Unknown]
  - Palpitations [Unknown]
  - Pulmonary arterial hypertension [Unknown]
  - Mitral valve incompetence [Unknown]
  - Acute left ventricular failure [Unknown]
  - Arrhythmia [Unknown]
  - Aortic valve incompetence [Unknown]
  - Fatigue [Not Recovered/Not Resolved]
  - Essential hypertension [Unknown]
  - Aortic aneurysm [Unknown]
  - Asthenia [Unknown]
  - Left ventricular dysfunction [Unknown]
  - Dyspnoea paroxysmal nocturnal [Unknown]
  - Weight increased [Not Recovered/Not Resolved]
  - Orthopnoea [Unknown]
  - Oedema [Unknown]

NARRATIVE: CASE EVENT DATE: 20201001
